FAERS Safety Report 7161232-5 (Version None)
Quarter: 2010Q4

REPORT INFORMATION
  Report Type: 
  Country: None (occurrence: None)
  Receive Date: 20101215
  Receipt Date: 20101208
  Transmission Date: 20110411
  Serious: Yes (Other)
  Sender: FDA-Public Use
  Company Number: JP-SHIRE-SPV1-2010-02159

PATIENT
  Sex: Male

DRUGS (1)
  1. FOSRENOL [Suspect]
     Route: 048

REACTIONS (1)
  - ILEUS [None]
